FAERS Safety Report 8406162-3 (Version None)
Quarter: 2012Q2

REPORT INFORMATION
  Report Type: 
  Country: None (occurrence: None)
  Receive Date: 20120323
  Receipt Date: 20110826
  Transmission Date: 20120825
  Serious: Yes (Hospitalization)
  Sender: FDA-Public Use
  Company Number: 163-21880-11052501

PATIENT
  Age: 48 Year
  Sex: Male

DRUGS (15)
  1. LOVENOX [Concomitant]
  2. PRBC (BLOOD CELLS, PACKED HUMAN) [Concomitant]
  3. MS CONTIN [Concomitant]
  4. PRILOSEC [Concomitant]
  5. COLACE (DOCUSATE SODIUM) [Concomitant]
  6. PAMELOR [Concomitant]
  7. ASPIRIN [Concomitant]
  8. REMERON [Concomitant]
  9. COMPAZINE [Concomitant]
  10. CLONAZEPAM [Concomitant]
  11. DECADRON [Concomitant]
  12. MORPHINE [Concomitant]
  13. REVLIMID [Suspect]
     Indication: MULTIPLE MYELOMA
     Dosage: 25 MG, DAILY FOR 21 DAYS, PO
     Route: 048
     Dates: start: 20110423, end: 20110804
  14. KLONOPIN [Concomitant]
  15. SENOKOT [Concomitant]

REACTIONS (3)
  - DIZZINESS [None]
  - PULMONARY EMBOLISM [None]
  - PNEUMONIA [None]
